FAERS Safety Report 21599831 (Version 1)
Quarter: 2022Q4

REPORT INFORMATION
  Report Type: Spontaneous
  Country: FR (occurrence: FR)
  Receive Date: 20221115
  Receipt Date: 20221115
  Transmission Date: 20230112
  Serious: Yes (Hospitalization)
  Sender: FDA-Public Use
  Company Number: FR-BRISTOL-MYERS SQUIBB COMPANY-2022-138022

PATIENT
  Age: 57 Year
  Sex: Male

DRUGS (1)
  1. AZACTAM [Suspect]
     Active Substance: AZTREONAM
     Indication: Device related infection
     Route: 051

REACTIONS (3)
  - Inflammation [Unknown]
  - Hyperthermia [Unknown]
  - Off label use [Unknown]
